FAERS Safety Report 22049035 (Version 5)
Quarter: 2024Q3

REPORT INFORMATION
  Report Type: Report from Study
  Country: EG (occurrence: EG)
  Receive Date: 20230301
  Receipt Date: 20240816
  Transmission Date: 20241017
  Serious: Yes (Other)
  Sender: NOVARTIS
  Company Number: EG-002147023-NVSC2023EG044792

PATIENT
  Age: 15 Year
  Sex: Male
  Weight: 100 kg

DRUGS (8)
  1. COSENTYX [Suspect]
     Active Substance: SECUKINUMAB
     Indication: Psoriasis
     Dosage: 2 DOSAGE FORM, QW (2 PREFILLED PENS WEEKLY FOR 4 WEEKS AS A LOADING DOSE)
     Route: 058
     Dates: start: 20230215
  2. COSENTYX [Suspect]
     Active Substance: SECUKINUMAB
     Dosage: 2 DOSAGE FORM, QMO (2 PREFILLED PENS QMO WEEKLY FOR A MONTH)
     Route: 058
     Dates: start: 202302
  3. COSENTYX [Suspect]
     Active Substance: SECUKINUMAB
     Dosage: 2 DOSAGE FORM, QMO (2 PREFILLED PEN MONTHLY FOR 6 MONTHS)
     Route: 058
     Dates: start: 202302
  4. COSENTYX [Suspect]
     Active Substance: SECUKINUMAB
     Dosage: 2 DOSAGE FORM, QMO (2 PREFILLED PEN EVERY WEEK FOR 1 MONTH AS A LOADING DOSE (8 PENS) AS OFF?LABEL L
     Route: 058
  5. COSENTYX [Suspect]
     Active Substance: SECUKINUMAB
     Dosage: 150 MG
     Route: 058
  6. COSENTYX [Suspect]
     Active Substance: SECUKINUMAB
     Dosage: 2 DOSAGE FORM, QW (2 COSENTYX PREFILLED PENS EACH WEEK FOR ONE MONTH)
     Route: 058
     Dates: start: 20230606
  7. COSENTYX [Suspect]
     Active Substance: SECUKINUMAB
     Dosage: 2 DOSAGE FORM, QMO (2 PREFILLED PENS MONTHLY FOR 6 MONTHS)
     Route: 058
  8. COSENTYX [Suspect]
     Active Substance: SECUKINUMAB
     Dosage: 2 PREFILLED PENS EVERY WEEK FOR 4 WEEKS THEN 2 PREFILLED PENS EVERY MONTH
     Route: 058

REACTIONS (5)
  - Pruritus [Not Recovered/Not Resolved]
  - Rhinorrhoea [Recovered/Resolved]
  - Pyrexia [Recovered/Resolved]
  - Psoriasis [Not Recovered/Not Resolved]
  - Off label use [Not Recovered/Not Resolved]

NARRATIVE: CASE EVENT DATE: 20230215
